FAERS Safety Report 6904987-4 (Version None)
Quarter: 2010Q3

REPORT INFORMATION
  Report Type: 
  Country: None (occurrence: None)
  Receive Date: 20100804
  Receipt Date: 20090819
  Transmission Date: 20110219
  Serious: No
  Sender: FDA-Public Use
  Company Number: US-PFIZER INC-2009234490

PATIENT
  Sex: Male
  Weight: 68 kg

DRUGS (2)
  1. LYRICA [Suspect]
     Indication: RADICULOPATHY
     Dosage: 75 MG, 2X/DAY
     Dates: start: 20090617, end: 20090627
  2. BENICAR [Concomitant]
     Indication: HYPERTENSION

REACTIONS (3)
  - ATAXIA [None]
  - FEELING DRUNK [None]
  - PHOTOSENSITIVITY REACTION [None]
